FAERS Safety Report 18791296 (Version 3)
Quarter: 2021Q2

REPORT INFORMATION
  Report Type: Spontaneous
  Country: JP (occurrence: JP)
  Receive Date: 20210126
  Receipt Date: 20210401
  Transmission Date: 20210717
  Serious: Yes (Other)
  Sender: FDA-Public Use
  Company Number: JP-PFIZER INC-2021064356

PATIENT
  Age: 6 Year
  Sex: Male

DRUGS (11)
  1. MIDAZOLAM. [Concomitant]
     Active Substance: MIDAZOLAM
     Indication: EYE MOVEMENT DISORDER
  2. FOSTOIN [Suspect]
     Active Substance: FOSPHENYTOIN SODIUM
     Indication: POSTERIOR REVERSIBLE ENCEPHALOPATHY SYNDROME
  3. MIDAZOLAM. [Concomitant]
     Active Substance: MIDAZOLAM
     Indication: ALTERED STATE OF CONSCIOUSNESS
  4. NICARDIPINE HYDROCHLORIDE. [Concomitant]
     Active Substance: NICARDIPINE HYDROCHLORIDE
     Indication: HYPERTENSION
     Dosage: UNK
     Route: 065
  5. NICARDIPINE HYDROCHLORIDE. [Concomitant]
     Active Substance: NICARDIPINE HYDROCHLORIDE
     Indication: POSTERIOR REVERSIBLE ENCEPHALOPATHY SYNDROME
  6. FOSTOIN [Suspect]
     Active Substance: FOSPHENYTOIN SODIUM
     Indication: SEIZURE
     Dosage: UNK
     Route: 042
  7. MIDAZOLAM. [Concomitant]
     Active Substance: MIDAZOLAM
     Indication: SEIZURE
     Dosage: UNK
     Route: 065
  8. MIDAZOLAM. [Concomitant]
     Active Substance: MIDAZOLAM
     Indication: POSTERIOR REVERSIBLE ENCEPHALOPATHY SYNDROME
     Dosage: UNK
     Route: 042
  9. NOBELBAR [Suspect]
     Active Substance: PHENOBARBITAL SODIUM
     Indication: SEIZURE
     Dosage: UNK
     Route: 042
  10. NOBELBAR [Suspect]
     Active Substance: PHENOBARBITAL SODIUM
     Indication: POSTERIOR REVERSIBLE ENCEPHALOPATHY SYNDROME
  11. PREDNISOLONE. [Concomitant]
     Active Substance: PREDNISOLONE
     Indication: NEPHROTIC SYNDROME
     Dosage: 60 MG/M2, 1X/DAY
     Route: 065

REACTIONS (3)
  - Blood urea decreased [Recovered/Resolved]
  - Haematocrit decreased [Recovered/Resolved]
  - Inappropriate antidiuretic hormone secretion [Recovered/Resolved]
